FAERS Safety Report 10597854 (Version 1)
Quarter: 2014Q4

REPORT INFORMATION
  Report Type: Spontaneous
  Country: US (occurrence: None)
  Receive Date: 20141105
  Receipt Date: 20141105
  Transmission Date: 20150529
  Serious: Yes (Other)
  Sender: FDA-Public Use
  Company Number: 2014SA025656

PATIENT
  Age: 28 Year
  Sex: Male

DRUGS (1)
  1. TUBERSOL [Suspect]
     Active Substance: TUBERCULIN PURIFIED PROTEIN DERIVATIVE
     Indication: TUBERCULIN TEST
     Dosage: INTERDERMAL
     Route: 023
     Dates: start: 20140226, end: 20140226

REACTIONS (6)
  - Respiratory distress [None]
  - Urticaria [None]
  - Rash generalised [None]
  - Swelling [None]
  - Throat tightness [None]
  - Feeling hot [None]

NARRATIVE: CASE EVENT DATE: 20140226
